FAERS Safety Report 10917842 (Version 3)
Quarter: 2015Q2

REPORT INFORMATION
  Report Type: Spontaneous
  Country: JP (occurrence: JP)
  Receive Date: 20150316
  Receipt Date: 20150629
  Transmission Date: 20150821
  Serious: Yes (Other)
  Sender: FDA-Public Use
  Company Number: JP-PFIZER INC-2015087372

PATIENT
  Age: 75 Year
  Sex: Female
  Weight: 58 kg

DRUGS (6)
  1. ZYVOX [Suspect]
     Active Substance: LINEZOLID
     Indication: PNEUMONIA STAPHYLOCOCCAL
     Dosage: 600 MG, 2X/DAY
     Route: 041
     Dates: start: 20130601, end: 20130606
  2. FUNGUARD [Concomitant]
     Active Substance: MICAFUNGIN SODIUM
     Dosage: 150 MG, 1X/DAY
     Route: 042
     Dates: start: 20130601, end: 20130608
  3. ALBUMINAR [Suspect]
     Active Substance: ALBUMIN (HUMAN)
     Dosage: 25 G, 1X/DAY
     Route: 041
     Dates: start: 20130530, end: 20130615
  4. AZACTAM [Concomitant]
     Active Substance: AZTREONAM
     Indication: INFECTION
     Dosage: 1 G, 4X/DAY
     Route: 042
     Dates: start: 20130530, end: 20130607
  5. NISSEKI POLYGLOBIN N [Concomitant]
     Active Substance: HUMAN IMMUNOGLOBULIN G
     Dosage: 5 G, 1X/DAY
     Route: 042
     Dates: start: 20130530, end: 20130601
  6. NEUART [Concomitant]
     Indication: INFECTION
     Dosage: 1500 1X/DAY
     Route: 042
     Dates: start: 20130530, end: 20130602

REACTIONS (1)
  - Cardiac failure congestive [Recovered/Resolved]

NARRATIVE: CASE EVENT DATE: 20130603
